FAERS Safety Report 10337139 (Version 2)
Quarter: 2014Q4

REPORT INFORMATION
  Report Type: Report from Study
  Country: US (occurrence: US)
  Receive Date: 20140723
  Receipt Date: 20141020
  Transmission Date: 20150528
  Serious: Yes (Hospitalization)
  Sender: FDA-Public Use
  Company Number: US-ABBVIE-14P-163-1261201-00

PATIENT
  Sex: Male
  Weight: 113.5 kg

DRUGS (8)
  1. HUMIRA [Suspect]
     Active Substance: ADALIMUMAB
     Indication: PSORIASIS
     Dosage: ONCE
     Route: 058
     Dates: start: 2010, end: 2010
  2. GLIPIZIDE. [Concomitant]
     Active Substance: GLIPIZIDE
     Indication: DIABETES MELLITUS
  3. LOVASTATIN. [Concomitant]
     Active Substance: LOVASTATIN
     Indication: BLOOD CHOLESTEROL ABNORMAL
  4. ATENOLOL. [Concomitant]
     Active Substance: ATENOLOL
     Indication: PRODUCT USED FOR UNKNOWN INDICATION
     Dates: start: 201405
  5. HUMIRA [Suspect]
     Active Substance: ADALIMUMAB
     Indication: PSORIASIS
     Route: 058
     Dates: start: 2010, end: 2012
  6. METFORMIN [Concomitant]
     Active Substance: METFORMIN HYDROCHLORIDE
     Indication: DIABETES MELLITUS
  7. HUMIRA [Suspect]
     Active Substance: ADALIMUMAB
     Route: 058
     Dates: start: 2014
  8. CLONIDINE. [Concomitant]
     Active Substance: CLONIDINE
     Indication: BLOOD PRESSURE ABNORMAL

REACTIONS (8)
  - Blood glucose increased [Recovered/Resolved]
  - Heart rate increased [Recovered/Resolved]
  - Psoriasis [Not Recovered/Not Resolved]
  - Blood glucose increased [Recovered/Resolved]
  - Heart rate increased [Recovered/Resolved]
  - Atrial fibrillation [Recovered/Resolved]
  - Psoriasis [Not Recovered/Not Resolved]
  - Atrial fibrillation [Recovered/Resolved]

NARRATIVE: CASE EVENT DATE: 2012
